FAERS Safety Report 11779312 (Version 4)
Quarter: 2015Q4

REPORT INFORMATION
  Report Type: Spontaneous
  Country: US (occurrence: US)
  Receive Date: 20151125
  Receipt Date: 20151208
  Transmission Date: 20160304
  Serious: Yes (Death, Hospitalization, Other)
  Sender: FDA-Public Use
  Company Number: PHHY2015US151717

PATIENT
  Age: 36 Year
  Sex: Female

DRUGS (5)
  1. PACLITAXEL. [Suspect]
     Active Substance: PACLITAXEL
     Dosage: 135 MG/M2, (1 CYCLE)
     Route: 065
  2. INTERFERON A [Suspect]
     Active Substance: INTERFERON ALFA-2A
     Indication: METASTATIC MALIGNANT MELANOMA
     Route: 065
  3. PAZOPANIB [Suspect]
     Active Substance: PAZOPANIB
     Indication: METASTATIC MALIGNANT MELANOMA
     Dosage: 400 MG, BID (3 CYCLES)
     Route: 065
  4. PACLITAXEL. [Suspect]
     Active Substance: PACLITAXEL
     Indication: METASTATIC MALIGNANT MELANOMA
     Dosage: 150 MG/M2, EVERY 21 DAYS (2 CYCLES)
     Route: 065
  5. IPILIMUMAB [Suspect]
     Active Substance: IPILIMUMAB
     Indication: METASTATIC MALIGNANT MELANOMA
     Route: 065

REACTIONS (8)
  - Arthritis infective [Unknown]
  - Metastases to lung [Fatal]
  - Cerebral haemorrhage [Unknown]
  - Malignant neoplasm progression [Fatal]
  - Metastases to central nervous system [Fatal]
  - Somnolence [Fatal]
  - Asthenia [Fatal]
  - Acute kidney injury [Unknown]
